FAERS Safety Report 26034225 (Version 1)
Quarter: 2025Q4

REPORT INFORMATION
  Report Type: Spontaneous
  Country: CN (occurrence: CN)
  Receive Date: 20251112
  Receipt Date: 20251112
  Transmission Date: 20260118
  Serious: Yes (Other)
  Sender: AUROBINDO
  Company Number: CN-AUROBINDO-AUR-APL-2025-056281

PATIENT
  Age: 72 Year
  Sex: Female

DRUGS (6)
  1. MIRTAZAPINE [Suspect]
     Active Substance: MIRTAZAPINE
     Indication: Major depression
     Dosage: 30 MILLIGRAM, ONCE A DAY
     Route: 048
     Dates: start: 20251022, end: 20251026
  2. LORAZEPAM [Concomitant]
     Active Substance: LORAZEPAM
     Indication: Anxiety
     Dosage: 0.5 MILLIGRAM, 3 TIMES A DAY
     Route: 048
     Dates: start: 20251022, end: 20251030
  3. OLANZAPINE [Concomitant]
     Active Substance: OLANZAPINE
     Indication: Emotional disorder
     Dosage: 5 MILLIGRAM, ONCE A DAY
     Route: 048
     Dates: start: 20251022, end: 20251030
  4. OLANZAPINE [Concomitant]
     Active Substance: OLANZAPINE
     Dosage: 2.5 MILLIGRAM, ONCE A DAY
     Route: 048
     Dates: start: 20251024
  5. OLANZAPINE [Concomitant]
     Active Substance: OLANZAPINE
     Dosage: 5 MILLIGRAM, ONCE A DAY
     Route: 048
     Dates: start: 20251029
  6. TOLUDESVENLAFAXINE HYDROCHLORIDE [Concomitant]
     Active Substance: TOLUDESVENLAFAXINE HYDROCHLORIDE
     Indication: Depression
     Dosage: 80 MILLIGRAM, ONCE A DAY
     Route: 048
     Dates: start: 20251022, end: 20251030

REACTIONS (3)
  - Hepatic enzyme abnormal [Recovered/Resolved]
  - Alanine aminotransferase increased [Recovered/Resolved]
  - Aspartate aminotransferase increased [Recovered/Resolved]

NARRATIVE: CASE EVENT DATE: 20251023
